FAERS Safety Report 9097097 (Version 1)
Quarter: 2013Q1

REPORT INFORMATION
  Report Type: Spontaneous
  Country: NL (occurrence: None)
  Receive Date: 20130123
  Receipt Date: 20130123
  Transmission Date: 20140127
  Serious: Yes (Hospitalization)
  Sender: FDA-Public Use
  Company Number: NL-010479

PATIENT
  Sex: Male

DRUGS (1)
  1. DEGARELIX (FIRMAGON) [Suspect]
     Indication: PROSTATE CANCER
     Route: 058

REACTIONS (5)
  - Pyrexia [None]
  - Hypertension [None]
  - Dyspnoea [None]
  - Injection site infection [None]
  - Injection site erythema [None]
